FAERS Safety Report 14101401 (Version 1)
Quarter: 2017Q4

REPORT INFORMATION
  Report Type: Spontaneous
  Country: US (occurrence: None)
  Receive Date: 20171018
  Receipt Date: 20171018
  Transmission Date: 20180321
  Serious: Yes (Hospitalization)
  Sender: FDA-Public Use
  Company Number: None

PATIENT
  Age: 72 Year
  Sex: Female

DRUGS (1)
  1. CEFEPIME [Suspect]
     Active Substance: CEFEPIME HYDROCHLORIDE

REACTIONS (5)
  - Aphasia [None]
  - Therapy cessation [None]
  - Toxicity to various agents [None]
  - Cerebrovascular accident [None]
  - Accidental overdose [None]
